FAERS Safety Report 5743633-2 (Version None)
Quarter: 2008Q2

REPORT INFORMATION
  Report Type: 
  Country: None (occurrence: None)
  Receive Date: 20080520
  Receipt Date: 20080509
  Transmission Date: 20081010
  Serious: Yes (Other)
  Sender: FDA-Public Use
  Company Number: DK-JNJFOC-20080406247

PATIENT
  Sex: Female

DRUGS (5)
  1. REMICADE [Suspect]
     Indication: RHEUMATOID ARTHRITIS
     Dosage: WEEK 0,2,6, AND 8
     Route: 042
  2. HUMIRA [Suspect]
     Indication: RHEUMATOID ARTHRITIS
     Route: 058
  3. ENBREL [Suspect]
     Indication: RHEUMATOID ARTHRITIS
     Route: 058
  4. SALAZOPYRIN [Concomitant]
     Route: 048
  5. PREDNISOLON [Concomitant]

REACTIONS (1)
  - LUNG ADENOCARCINOMA [None]
